FAERS Safety Report 6218929-0 (Version None)
Quarter: 2009Q2

REPORT INFORMATION
  Report Type: 
  Country: None (occurrence: None)
  Receive Date: 20090608
  Receipt Date: 20090515
  Transmission Date: 20091009
  Serious: Yes (Death, Other)
  Sender: FDA-Public Use
  Company Number: US-BAXTER-2008BH011001

PATIENT
  Age: 54 Year
  Sex: Male

DRUGS (7)
  1. HEPARIN SODIUM INJECTION [Suspect]
     Indication: CATHETERISATION CARDIAC
     Route: 042
     Dates: start: 20071228, end: 20071228
  2. HEPARIN SODIUM INJECTION [Suspect]
     Indication: CORONARY ARTERY BYPASS
     Route: 042
     Dates: start: 20071228, end: 20071228
  3. HEPARIN SODIUM INJECTION [Suspect]
     Route: 042
     Dates: start: 20071231, end: 20071231
  4. HEPARIN SODIUM INJECTION [Suspect]
     Route: 042
     Dates: start: 20071231, end: 20071231
  5. HEPARIN SODIUM 5,000 UNITS IN DEXTROSE 5% [Suspect]
     Indication: DRUG USE FOR UNKNOWN INDICATION
     Route: 042
     Dates: start: 20080101, end: 20080102
  6. LABETALOL HCL [Concomitant]
     Indication: DRUG USE FOR UNKNOWN INDICATION
     Route: 065
  7. NORMODYNE [Concomitant]
     Indication: DRUG USE FOR UNKNOWN INDICATION
     Route: 048

REACTIONS (15)
  - BLOOD PRESSURE DECREASED [None]
  - CARDIAC ARREST [None]
  - CARDIAC FAILURE CONGESTIVE [None]
  - CARDIOGENIC SHOCK [None]
  - COAGULOPATHY [None]
  - CYANOSIS [None]
  - GENERALISED OEDEMA [None]
  - HAEMATOMA [None]
  - ISCHAEMIC CARDIOMYOPATHY [None]
  - LOCAL SWELLING [None]
  - MULTI-ORGAN FAILURE [None]
  - POST PROCEDURAL HAEMORRHAGE [None]
  - RENAL FAILURE ACUTE [None]
  - SHOCK [None]
  - VENTRICULAR FIBRILLATION [None]
